FAERS Safety Report 5754649-4 (Version None)
Quarter: 2008Q2

REPORT INFORMATION
  Report Type: 
  Country: None (occurrence: None)
  Receive Date: 20080527
  Receipt Date: 20080512
  Transmission Date: 20081010
  Serious: Yes (Disabling)
  Sender: FDA-Public Use
  Company Number: ALL1-2008-01239

PATIENT
  Age: 10 Year
  Sex: Male
  Weight: 29.5 kg

DRUGS (2)
  1. VYVANSE [Suspect]
     Indication: ATTENTION DEFICIT/HYPERACTIVITY DISORDER
     Dosage: 50-70 MG, 1X/DAY, ORAL
     Route: 048
     Dates: start: 20080102, end: 20080417
  2. CLONIDINE [Concomitant]

REACTIONS (2)
  - DIPLOPIA [None]
  - EXTRAOCULAR MUSCLE DISORDER [None]
